FAERS Safety Report 7884579-3 (Version None)
Quarter: 2011Q4

REPORT INFORMATION
  Report Type: 
  Country: None (occurrence: None)
  Receive Date: 20111102
  Receipt Date: 20111030
  Transmission Date: 20120403
  Serious: Yes (Life-Threatening)
  Sender: FDA-Public Use
  Company Number: NZ-B.I. PHARMACEUTICALS,INC./RIDGEFIELD-2011-AU-02007AU

PATIENT
  Age: 9 Decade
  Sex: Female

DRUGS (5)
  1. QUINAPRIL [Concomitant]
  2. PRADAXA [Suspect]
  3. METOPROLOL TARTRATE [Concomitant]
  4. ISOSORBIDE DINITRATE [Concomitant]
  5. FUROSEMIDE [Concomitant]

REACTIONS (2)
  - DYSPNOEA [None]
  - HAEMOPTYSIS [None]
